FAERS Safety Report 20854596 (Version 1)
Quarter: 2022Q2

REPORT INFORMATION
  Report Type: Report from Study
  Country: CZ (occurrence: CZ)
  Receive Date: 20220520
  Receipt Date: 20220520
  Transmission Date: 20220720
  Serious: Yes (Hospitalization)
  Sender: FDA-Public Use
  Company Number: CZ-ALXN-A202204791

PATIENT
  Age: 54 Year
  Sex: Male
  Weight: 106 kg

DRUGS (9)
  1. RAVULIZUMAB [Suspect]
     Active Substance: RAVULIZUMAB
     Indication: Myasthenia gravis
     Dosage: UNK
     Route: 042
     Dates: start: 20220413
  2. RAVULIZUMAB [Suspect]
     Active Substance: RAVULIZUMAB
     Indication: Myasthenia gravis
     Dosage: UNK
     Route: 042
     Dates: start: 20201029
  3. BISULEPIN [Concomitant]
     Active Substance: BISULEPIN
     Indication: Infusion related reaction
     Dosage: 1 MG, SINGLE
     Route: 042
     Dates: start: 20220413, end: 20220413
  4. HELICID                            /00661201/ [Concomitant]
     Indication: Prophylaxis against gastrointestinal ulcer
     Dosage: 20 MG, QD
     Route: 048
     Dates: start: 20150713
  5. IMURAN                             /00001501/ [Concomitant]
     Indication: Myasthenia gravis
     Dosage: 50 MG, QD
     Route: 048
     Dates: start: 20160425
  6. MESTINON [Concomitant]
     Active Substance: PYRIDOSTIGMINE BROMIDE
     Indication: Myasthenia gravis
     Dosage: 60 MG, QID
     Route: 048
     Dates: start: 20210428
  7. PREDNISONE [Concomitant]
     Active Substance: PREDNISONE
     Indication: Myasthenia gravis
     Dosage: 20 MG, QD
     Route: 048
     Dates: start: 20190813
  8. METFORMIN HYDROCHLORIDE [Concomitant]
     Active Substance: METFORMIN HYDROCHLORIDE
     Indication: Type 2 diabetes mellitus
     Dosage: 250 MG, QD
     Route: 048
     Dates: start: 20220323
  9. ATORVASTATIN CALCIUM [Concomitant]
     Active Substance: ATORVASTATIN CALCIUM
     Indication: Dyslipidaemia
     Dosage: 10 MG, QD
     Route: 048
     Dates: start: 20220323

REACTIONS (1)
  - Gonococcal infection [Recovered/Resolved]

NARRATIVE: CASE EVENT DATE: 20220419
